FAERS Safety Report 6530260-2 (Version None)
Quarter: 2009Q4

REPORT INFORMATION
  Report Type: 
  Country: None (occurrence: None)
  Receive Date: 20091231
  Receipt Date: 20091218
  Transmission Date: 20100525
  Serious: Yes (Hospitalization)
  Sender: FDA-Public Use
  Company Number: 2009SP039176

PATIENT
  Sex: Female

DRUGS (1)
  1. PROVENTIL-HFA [Suspect]
     Indication: DRUG USE FOR UNKNOWN INDICATION
     Dosage: ; PO
     Route: 048

REACTIONS (9)
  - APHONIA [None]
  - DIZZINESS [None]
  - DRUG EFFECT DECREASED [None]
  - INCREASED UPPER AIRWAY SECRETION [None]
  - INSOMNIA [None]
  - LARYNGEAL CYST [None]
  - PALPITATIONS [None]
  - PRODUCT PACKAGING QUANTITY ISSUE [None]
  - VIRAL INFECTION [None]
